FAERS Safety Report 17581645 (Version 1)
Quarter: 2020Q1

REPORT INFORMATION
  Report Type: Spontaneous
  Country: US (occurrence: US)
  Receive Date: 20200323
  Receipt Date: 20200323
  Transmission Date: 20200409
  Serious: Yes (Other)
  Sender: FDA-Public Use
  Company Number: None

PATIENT
  Age: 83 Year
  Weight: 87.3 kg

DRUGS (2)
  1. BRAFTOVI [Suspect]
     Active Substance: ENCORAFENIB
     Indication: SALIVARY GLAND CANCER
     Route: 048
     Dates: start: 20191005, end: 20200323
  2. MEKTOVI [Suspect]
     Active Substance: BINIMETINIB
     Indication: SALIVARY GLAND CANCER
     Route: 048
     Dates: start: 20191005, end: 20200323

REACTIONS (3)
  - Dyspnoea [None]
  - Muscular weakness [None]
  - Cardiac disorder [None]

NARRATIVE: CASE EVENT DATE: 20200323
